FAERS Safety Report 22032461 (Version 1)
Quarter: 2023Q1

REPORT INFORMATION
  Report Type: Other
  Country: AU (occurrence: AU)
  Receive Date: 20230224
  Receipt Date: 20230224
  Transmission Date: 20230418
  Serious: Yes (Other)
  Sender: FDA-Public Use
  Company Number: AU-CELLTRION INC.-2023AU004170

PATIENT

DRUGS (5)
  1. RITUXIMAB [Suspect]
     Active Substance: RITUXIMAB
     Indication: Product used for unknown indication
  2. CISPLATIN [Suspect]
     Active Substance: CISPLATIN
     Indication: Product used for unknown indication
  3. DEXAMETHASONE [Suspect]
     Active Substance: DEXAMETHASONE
     Indication: Product used for unknown indication
  4. DOXORUBICIN HYDROCHLORIDE [Suspect]
     Active Substance: DOXORUBICIN HYDROCHLORIDE
     Indication: Product used for unknown indication
  5. TISAGENLECLEUCEL [Suspect]
     Active Substance: TISAGENLECLEUCEL
     Indication: Product used for unknown indication

REACTIONS (22)
  - COVID-19 [Unknown]
  - Abdominal discomfort [Unknown]
  - Bone marrow disorder [Unknown]
  - Abdominal lymphadenopathy [Unknown]
  - Decreased immune responsiveness [Unknown]
  - Disease recurrence [Unknown]
  - Disturbance in attention [Unknown]
  - Feeling abnormal [Unknown]
  - Laboratory test abnormal [Unknown]
  - Memory impairment [Unknown]
  - Adverse drug reaction [Unknown]
  - Anxiety [Unknown]
  - Alopecia [Unknown]
  - Depressed mood [Unknown]
  - Fatigue [Unknown]
  - Nausea [Unknown]
  - Neutrophil count decreased [Unknown]
  - Pyrexia [Unknown]
  - Tinnitus [Unknown]
  - Drug ineffective [Unknown]
  - Therapeutic product effect incomplete [Unknown]
  - Therapeutic response delayed [Unknown]
